FAERS Safety Report 22048272 (Version 2)
Quarter: 2023Q1

REPORT INFORMATION
  Report Type: Other
  Country: PE (occurrence: PE)
  Receive Date: 20230301
  Receipt Date: 20230307
  Transmission Date: 20230418
  Serious: Yes (Hospitalization, Other)
  Sender: FDA-Public Use
  Company Number: PE-002147023-NVSC2023PE006271

PATIENT
  Age: 17 Year
  Sex: Female

DRUGS (2)
  1. XOLAIR [Suspect]
     Active Substance: OMALIZUMAB
     Indication: Asthma
     Dosage: 300 MG (TWO DOSES OF XOLAIR 150MG, INJECTABLE SOLUTION)
     Route: 058
     Dates: start: 202301
  2. XOLAIR [Suspect]
     Active Substance: OMALIZUMAB
     Dosage: 150 MG, QMO
     Route: 058

REACTIONS (8)
  - Dyspnoea [Unknown]
  - Gait inability [Recovering/Resolving]
  - Breath sounds abnormal [Recovering/Resolving]
  - Respiratory disorder [Unknown]
  - Dyspnoea exertional [Recovering/Resolving]
  - Fatigue [Unknown]
  - Cough [Not Recovered/Not Resolved]
  - Therapeutic product effect incomplete [Unknown]

NARRATIVE: CASE EVENT DATE: 20230101
